FAERS Safety Report 16584631 (Version 1)
Quarter: 2019Q3

REPORT INFORMATION
  Report Type: Spontaneous
  Country: US (occurrence: US)
  Receive Date: 20190717
  Receipt Date: 20190717
  Transmission Date: 20191004
  Serious: No
  Sender: FDA-Public Use
  Company Number: US-DRREDDYS-USA/USA/19/0111901

PATIENT
  Sex: Male
  Weight: 85.5 kg

DRUGS (7)
  1. NUPERCAINAL [Suspect]
     Active Substance: DIBUCAINE
     Indication: HAEMORRHOIDS
  2. ATORVASTATIN [Concomitant]
     Active Substance: ATORVASTATIN
     Indication: BLOOD CHOLESTEROL INCREASED
     Route: 065
  3. PROZAC [Concomitant]
     Active Substance: FLUOXETINE HYDROCHLORIDE
     Indication: ANXIETY
  4. NUPERCAINAL [Suspect]
     Active Substance: DIBUCAINE
     Indication: WOUND
     Route: 065
  5. PROZAC [Concomitant]
     Active Substance: FLUOXETINE HYDROCHLORIDE
     Indication: DEPRESSION
     Route: 065
  6. RAMIPRIL 10 MG [Concomitant]
     Indication: HYPERTENSION
  7. PANTOPRAZOLE SODIUM DR TABLETS 20MG AND  40MG [Concomitant]
     Active Substance: PANTOPRAZOLE SODIUM
     Indication: GASTROOESOPHAGEAL REFLUX DISEASE
     Route: 065

REACTIONS (1)
  - Product use in unapproved indication [Unknown]
